FAERS Safety Report 4841767-8 (Version None)
Quarter: 2005Q4

REPORT INFORMATION
  Report Type: 
  Country: None (occurrence: None)
  Receive Date: 20051130
  Receipt Date: 20051118
  Transmission Date: 20060501
  Serious: Yes (Other)
  Sender: FDA-Public Use
  Company Number: PHBS2005JP17027

PATIENT
  Age: 6 Year
  Sex: Female

DRUGS (4)
  1. NEORAL [Suspect]
     Indication: NEPHROTIC SYNDROME
     Dosage: 90 MG/D
     Route: 048
     Dates: start: 20041117, end: 20050711
  2. NEORAL [Suspect]
     Dosage: 40 MG/D
     Route: 048
     Dates: start: 20050712, end: 20050920
  3. NEORAL [Suspect]
     Dosage: 40 MG/D
     Route: 048
     Dates: start: 20050929
  4. LONGES [Concomitant]
     Dosage: 3 MG/D
     Route: 048
     Dates: start: 20050101, end: 20050712

REACTIONS (2)
  - BLOOD ALKALINE PHOSPHATASE INCREASED [None]
  - HYPERPHOSPHATASAEMIA [None]
